FAERS Safety Report 7350711-3 (Version None)
Quarter: 2011Q1

REPORT INFORMATION
  Report Type: 
  Country: None (occurrence: None)
  Receive Date: 20110314
  Receipt Date: 20110309
  Transmission Date: 20110831
  Serious: Yes (Death)
  Sender: FDA-Public Use
  Company Number: US-ASTRAZENECA-2011SE13201

PATIENT
  Age: 4 Year
  Sex: Female

DRUGS (3)
  1. SEROQUEL [Suspect]
     Route: 048
  2. DEPAKOTE [Suspect]
  3. CLONIDINE [Suspect]

REACTIONS (1)
  - OVERDOSE [None]
